FAERS Safety Report 8184432-4 (Version None)
Quarter: 2012Q1

REPORT INFORMATION
  Report Type: 
  Country: None (occurrence: None)
  Receive Date: 20120305
  Receipt Date: 20120227
  Transmission Date: 20120608
  Serious: Yes (Other)
  Sender: FDA-Public Use
  Company Number: SK-FRI-1000028302

PATIENT
  Sex: Female

DRUGS (3)
  1. XANAX [Concomitant]
     Indication: NEUROSIS
     Dosage: 0.75 MG
  2. CITALOPRAM HYDROBROMIDE [Suspect]
     Indication: NEUROSIS
     Route: 048
  3. QUETIAPINE [Concomitant]
     Indication: NEUROSIS
     Dosage: 25 MG

REACTIONS (5)
  - OEDEMA PERIPHERAL [None]
  - OFF LABEL USE [None]
  - PARAESTHESIA ORAL [None]
  - CYSTOID MACULAR OEDEMA [None]
  - FATIGUE [None]
